FAERS Safety Report 21222590 (Version 1)
Quarter: 2022Q3

REPORT INFORMATION
  Report Type: Spontaneous
  Country: US (occurrence: None)
  Receive Date: 20220816
  Receipt Date: 20220816
  Transmission Date: 20221027
  Serious: Yes (Hospitalization)
  Sender: FDA-Public Use
  Company Number: None

PATIENT
  Sex: Female

DRUGS (11)
  1. PULMOZYME [Suspect]
     Active Substance: DORNASE ALFA
     Indication: Cystic fibrosis
     Dosage: OTHER QUANTITY : 2.5 MG/2.5ML;?FREQUENCY : TWICE A DAY;?
     Route: 055
     Dates: start: 20150423
  2. PULMOZYME [Suspect]
     Active Substance: DORNASE ALFA
     Dosage: OTHER QUANTITY : 1 VIAL (2.5 MG);?FREQUENCY : TWICE A WEEK;?OTHER ROUTE : LUNGS VIA NEBULIZER;?
     Route: 050
  3. CAYSTON INH [Concomitant]
  4. FLUTICASONE [Concomitant]
  5. SODIUM CHLORIDE [Concomitant]
     Active Substance: SODIUM CHLORIDE
  6. NUCALA [Concomitant]
     Active Substance: MEPOLIZUMAB
  7. PARI PRONEB MAX LC PLUS [Concomitant]
  8. SODIUM CHLORIDE [Concomitant]
     Active Substance: SODIUM CHLORIDE
  9. TOBRAMYCIN [Concomitant]
     Active Substance: TOBRAMYCIN
  10. VITAMIN D [Concomitant]
  11. VITAMIN D 2 [Concomitant]

REACTIONS (1)
  - Hyperglycaemia [None]
